FAERS Safety Report 12330112 (Version 5)
Quarter: 2019Q1

REPORT INFORMATION
  Report Type: Spontaneous
  Country: JP (occurrence: JP)
  Receive Date: 20160504
  Receipt Date: 20190123
  Transmission Date: 20190417
  Serious: Yes (Death)
  Sender: FDA-Public Use
  Company Number: JP-ACTELION-A-CH2016-135025

PATIENT
  Age: 29 Year
  Sex: Male

DRUGS (17)
  1. OPSUMIT [Suspect]
     Active Substance: MACITENTAN
     Indication: PULMONARY ARTERIAL HYPERTENSION
     Dosage: 10 MG, OD
     Route: 048
     Dates: start: 20151020, end: 20181118
  2. ASPARA POTASSIUM [Concomitant]
     Active Substance: POTASSIUM ASPARTATE
  3. URSODEOXYCHOLIC ACID [Concomitant]
     Active Substance: URSODIOL
  4. AMIODARONE HYDROCHLORIDE. [Concomitant]
     Active Substance: AMIODARONE HYDROCHLORIDE
  5. BISOPROLOL FUMARATE. [Concomitant]
     Active Substance: BISOPROLOL FUMARATE
  6. APRINDINE HYDROCHLORIDE [Concomitant]
     Active Substance: APRINDINE HYDROCHLORIDE
  7. FUROSEMIDE. [Concomitant]
     Active Substance: FUROSEMIDE
  8. BUFFERIN [Concomitant]
     Active Substance: ASPIRIN
     Dosage: 81 MG, UNK
  9. PILSICAINIDE HYDROCHLORIDE [Concomitant]
     Active Substance: PILSICAINIDE HYDROCHLORIDE
  10. FERROUS CITRATE NA [Concomitant]
     Active Substance: SODIUM FERROUS CITRATE
  11. SPIRONOLACTONE. [Concomitant]
     Active Substance: SPIRONOLACTONE
  12. ELIQUIS [Concomitant]
     Active Substance: APIXABAN
  13. TAKECAB [Concomitant]
     Active Substance: VONOPRAZAN FUMURATE
  14. OPSUMIT [Suspect]
     Active Substance: MACITENTAN
     Dosage: 5 MG, OD
     Route: 048
     Dates: start: 20160421
  15. LIXIANA [Concomitant]
     Active Substance: EDOXABAN TOSYLATE
  16. SAMSCA [Concomitant]
     Active Substance: TOLVAPTAN
  17. CARVEDILOL. [Concomitant]
     Active Substance: CARVEDILOL

REACTIONS (11)
  - Syncope [Fatal]
  - Physical deconditioning [Fatal]
  - Cardiac failure [Fatal]
  - Oedema [Recovered/Resolved]
  - Decreased appetite [Fatal]
  - Loss of consciousness [Fatal]
  - Cardio-respiratory arrest [Fatal]
  - Haemoglobin decreased [Recovered/Resolved]
  - Cardiac arrest [Fatal]
  - Nausea [Fatal]
  - Depression [Recovering/Resolving]

NARRATIVE: CASE EVENT DATE: 20160229
